FAERS Safety Report 15404285 (Version 1)
Quarter: 2018Q3

REPORT INFORMATION
  Report Type: Spontaneous
  Country: NL (occurrence: NL)
  Receive Date: 20180919
  Receipt Date: 20180919
  Transmission Date: 20181010
  Serious: Yes (Life-Threatening)
  Sender: FDA-Public Use
  Company Number: PHHY2018NL098471

PATIENT
  Sex: Female

DRUGS (3)
  1. METHOTREXATE. [Suspect]
     Active Substance: METHOTREXATE
     Indication: VULVAL CANCER
     Dosage: UNK
     Route: 065
  2. CCNU [Suspect]
     Active Substance: LOMUSTINE
     Indication: VULVAL CANCER
     Dosage: UNK
     Route: 065
  3. BLEOMYCIN [Suspect]
     Active Substance: BLEOMYCIN SULFATE
     Indication: VULVAL CANCER
     Dosage: UNK
     Route: 065

REACTIONS (1)
  - Mucosal inflammation [Unknown]
